FAERS Safety Report 16304942 (Version 1)
Quarter: 2019Q2

REPORT INFORMATION
  Report Type: Spontaneous
  Country: US (occurrence: US)
  Receive Date: 20190513
  Receipt Date: 20190513
  Transmission Date: 20190711
  Serious: Yes (Death)
  Sender: FDA-Public Use
  Company Number: US-PFIZER INC-2018313419

PATIENT
  Age: 12 Year
  Sex: Female

DRUGS (1)
  1. IBRANCE [Suspect]
     Active Substance: PALBOCICLIB
     Dosage: 100 MG, CYCLIC (13 DAYS EVERY 21-DAY CYCLE)
     Route: 048

REACTIONS (2)
  - Death [Fatal]
  - Product use issue [Unknown]
